FAERS Safety Report 4599590-8 (Version None)
Quarter: 2005Q1

REPORT INFORMATION
  Report Type: 
  Country: None (occurrence: None)
  Receive Date: 20050303
  Receipt Date: 20050218
  Transmission Date: 20050727
  Serious: Yes (Other)
  Sender: FDA-Public Use
  Company Number: USA-2003-0008852

PATIENT
  Age: 40 Year
  Sex: Male

DRUGS (5)
  1. OXYCONTIN [Suspect]
     Indication: CANCER PAIN
     Dosage: SEE IMAGE
     Route: 048
     Dates: start: 20030601
  2. PERCOCET [Concomitant]
  3. VALIUM [Concomitant]
  4. LEVAQUIN [Concomitant]
  5. ZOLOFT [Concomitant]

REACTIONS (5)
  - DRUG ABUSER [None]
  - DRUG INEFFECTIVE [None]
  - LUNG NEOPLASM MALIGNANT [None]
  - MALIGNANT NEOPLASM PROGRESSION [None]
  - PAIN [None]
